FAERS Safety Report 11429954 (Version 1)
Quarter: 2015Q3

REPORT INFORMATION
  Report Type: Spontaneous
  Country: US (occurrence: US)
  Receive Date: 20150828
  Receipt Date: 20150828
  Transmission Date: 20151125
  Serious: Yes (Hospitalization)
  Sender: FDA-Public Use
  Company Number: US-ROCHE-1021129

PATIENT
  Age: 54 Year
  Sex: Male
  Weight: 87.17 kg

DRUGS (7)
  1. PEGASYS [Suspect]
     Active Substance: PEGINTERFERON ALFA-2A
     Route: 058
     Dates: end: 20120710
  2. RIBASPHERE [Suspect]
     Active Substance: RIBAVIRIN
     Route: 048
     Dates: start: 20111223, end: 20120710
  3. RIBASPHERE [Suspect]
     Active Substance: RIBAVIRIN
     Indication: CHRONIC HEPATITIS C
     Dosage: DIVIDED DOSES ORALLY 600/600
     Route: 048
     Dates: start: 20110806
  4. INCIVEK [Suspect]
     Active Substance: TELAPREVIR
     Indication: CHRONIC HEPATITIS C
     Route: 065
     Dates: start: 20110806, end: 20120629
  5. RIBASPHERE [Suspect]
     Active Substance: RIBAVIRIN
     Dosage: DATE OF LAST INJECTION: 29/JUN/2012
     Route: 048
     Dates: end: 20120706
  6. PEGASYS [Suspect]
     Active Substance: PEGINTERFERON ALFA-2A
     Indication: CHRONIC HEPATITIS C
     Route: 058
     Dates: start: 20110806
  7. PEGASYS [Suspect]
     Active Substance: PEGINTERFERON ALFA-2A
     Route: 058
     Dates: start: 20111223, end: 20120629

REACTIONS (25)
  - Rash pruritic [Recovering/Resolving]
  - Throat irritation [Unknown]
  - Cough [Unknown]
  - Malaise [Unknown]
  - Dyspnoea exertional [Unknown]
  - Nasal congestion [Unknown]
  - Productive cough [Unknown]
  - Dental caries [Unknown]
  - Red blood cell count decreased [Recovering/Resolving]
  - Viral load increased [Unknown]
  - Fatigue [Unknown]
  - Skin injury [Unknown]
  - Upper-airway cough syndrome [Unknown]
  - Rash pruritic [Recovered/Resolved]
  - Syncope [Unknown]
  - Vision blurred [Not Recovered/Not Resolved]
  - Anxiety [Unknown]
  - Asthenia [Unknown]
  - Dry mouth [Unknown]
  - White blood cell count decreased [Recovering/Resolving]
  - Injection site reaction [Not Recovered/Not Resolved]
  - Anaemia [Unknown]
  - Rash [Recovering/Resolving]
  - Infection [Unknown]
  - Insomnia [Unknown]

NARRATIVE: CASE EVENT DATE: 201111
